FAERS Safety Report 13160901 (Version 1)
Quarter: 2017Q1

REPORT INFORMATION
  Report Type: Spontaneous
  Country: GB (occurrence: GB)
  Receive Date: 20170130
  Receipt Date: 20170130
  Transmission Date: 20170428
  Serious: Yes (Other)
  Sender: FDA-Public Use
  Company Number: GB-JNJFOC-20170116900

PATIENT
  Age: 45 Year
  Sex: Female
  Weight: 84.36 kg

DRUGS (2)
  1. SUDAFED NASAL DECONGESTANT MAXIMUM STRENGTH [Suspect]
     Active Substance: PSEUDOEPHEDRINE HYDROCHLORIDE
     Indication: SECRETION DISCHARGE
     Dosage: CUMULATIVE DOSE TO FIRST REACTION 1.0(UNIT UNSPECIFIED) DOSE 1 (UNIT UNSPECIFIED) AT NIGHT
     Route: 048
     Dates: start: 20170105, end: 20170108
  2. SUDAFED NASAL DECONGESTANT MAXIMUM STRENGTH [Suspect]
     Active Substance: PSEUDOEPHEDRINE HYDROCHLORIDE
     Route: 048

REACTIONS (1)
  - Insomnia [Recovered/Resolved with Sequelae]

NARRATIVE: CASE EVENT DATE: 20170105
